FAERS Safety Report 5232397-7 (Version None)
Quarter: 2007Q1

REPORT INFORMATION
  Report Type: 
  Country: None (occurrence: None)
  Receive Date: 20070205
  Receipt Date: 20070125
  Transmission Date: 20070707
  Serious: Yes (Hospitalization)
  Sender: FDA-Public Use
  Company Number: GXKR2007GB01196

PATIENT
  Sex: Female

DRUGS (2)
  1. TRAMADOL HCL [Suspect]
     Dosage: 800 MG,
  2. ACETAMINOPHEN [Suspect]
     Dosage: 8 G,

REACTIONS (4)
  - ACCIDENTAL OVERDOSE [None]
  - BACK PAIN [None]
  - CLOSTRIDIUM DIFFICILE COLITIS [None]
  - LIVER FUNCTION TEST ABNORMAL [None]
